FAERS Safety Report 17336718 (Version 1)
Quarter: 2020Q1

REPORT INFORMATION
  Report Type: Report from Study
  Country: US (occurrence: US)
  Receive Date: 20200128
  Receipt Date: 20200128
  Transmission Date: 20200409
  Serious: Yes (Other)
  Sender: FDA-Public Use
  Company Number: US-CIPLA LTD.-2020US00517

PATIENT

DRUGS (4)
  1. SIROLIMUS. [Suspect]
     Active Substance: SIROLIMUS
     Indication: BRAIN NEOPLASM
     Dosage: UNK, ONCE A DAY, 42-DAY CYCLES
     Route: 048
  2. CYCLOPHOSPHAMIDE. [Suspect]
     Active Substance: CYCLOPHOSPHAMIDE
     Indication: BRAIN NEOPLASM
     Dosage: 2.5 MG/KG/DAY (MAXIMUM DOSE: 100 MG) IN 42-DAY CYCLES
     Route: 048
  3. CELECOXIB. [Suspect]
     Active Substance: CELECOXIB
     Indication: BRAIN NEOPLASM
     Dosage: 100 MILLIGRAM, BID
     Route: 048
  4. ETOPOSIDE. [Suspect]
     Active Substance: ETOPOSIDE
     Indication: BRAIN NEOPLASM
     Dosage: 50 MG/M2/DAY (MAXIMUM DOSE: 100 MG) IN 42-DAY CYCLES
     Route: 048

REACTIONS (6)
  - Cardio-respiratory arrest [Unknown]
  - Unresponsive to stimuli [Unknown]
  - Fatigue [Unknown]
  - Vomiting [Unknown]
  - Cough [Unknown]
  - Weight decreased [Unknown]
